FAERS Safety Report 9733418 (Version 3)
Quarter: 2014Q4

REPORT INFORMATION
  Report Type: Spontaneous
  Country: ES (occurrence: ES)
  Receive Date: 20131205
  Receipt Date: 20141224
  Transmission Date: 20150529
  Serious: Yes (Death, Life-Threatening, Hospitalization, Other)
  Sender: FDA-Public Use
  Company Number: ES-PFIZER INC-2013346342

PATIENT
  Age: 74 Year
  Sex: Male

DRUGS (22)
  1. ADRIAMYCIN [Suspect]
     Active Substance: DOXORUBICIN HYDROCHLORIDE
     Indication: PLASMA CELL MYELOMA
     Dosage: UNK, REGIMEN #1, (FIFTH LINE TREATMENT, CYCLE 1)
     Dates: start: 20130313, end: 20130412
  2. VELCADE [Suspect]
     Active Substance: BORTEZOMIB
     Indication: PLASMA CELL MYELOMA
     Dosage: UNK, REGIMEN #1, (FIFTH LINE TREATMENT, CYCLE 1)
     Dates: start: 20110906, end: 20111129
  3. LENALIDOMIDE [Suspect]
     Active Substance: LENALIDOMIDE
     Dosage: UNK, REGIMEN #3, (FIFTH LINE TREATMENT)
     Dates: start: 20121126, end: 20121217
  4. LENALIDOMIDE [Suspect]
     Active Substance: LENALIDOMIDE
     Dosage: UNK, REGIMEN #6, (FIFTH LINE TREATMENT, CYCLE 1)
     Dates: start: 20130313, end: 20130412
  5. LEVOFLOXACIN. [Concomitant]
     Active Substance: LEVOFLOXACIN
     Dosage: UNK
     Dates: start: 20130209
  6. ADRIAMYCIN [Suspect]
     Active Substance: DOXORUBICIN HYDROCHLORIDE
     Dosage: UNK, REGIMEN #2, (FIFTH LINE TREATMENT, CYCLE 2)
     Dates: start: 20130416, end: 20130426
  7. VELCADE [Suspect]
     Active Substance: BORTEZOMIB
     Dosage: UNK, REGIMEN #3, (FIFTH LINE TREATMENT, CYCLE 2)
     Dates: start: 20130416, end: 20130426
  8. LENALIDOMIDE [Suspect]
     Active Substance: LENALIDOMIDE
     Dosage: UNK, REGIMEN #5, (FIFTH LINE TREATMENT)
     Dates: start: 20130124, end: 20130206
  9. EPOETIN BETA [Concomitant]
     Active Substance: ERYTHROPOIETIN
     Dosage: UNK
     Dates: start: 20121114
  10. VELCADE [Suspect]
     Active Substance: BORTEZOMIB
     Dosage: UNK, REGIMEN #2, (FIFTH LINE TREATMENT, CYCLE 1)
     Dates: start: 20130313, end: 20130412
  11. LENALIDOMIDE [Suspect]
     Active Substance: LENALIDOMIDE
     Dosage: UNK, REGIMEN #7, (FIFTH LINE TREATMENT, CYCLE 2)
     Dates: start: 20130416, end: 20130426
  12. CISPLATIN. [Suspect]
     Active Substance: CISPLATIN
     Dosage: UNK, REGIMEN #2, (FIFTH LINE TREATMENT, CYCLE 2)
     Dates: start: 20130416, end: 20130426
  13. TREANDA [Suspect]
     Active Substance: BENDAMUSTINE HYDROCHLORIDE
     Indication: PLASMA CELL MYELOMA
     Dosage: UNK, (1 IN 1 D), (FOURTH LINE TREATMENT, CYCLE 1)
     Route: 042
     Dates: start: 20130221, end: 20130222
  14. LENALIDOMIDE [Suspect]
     Active Substance: LENALIDOMIDE
     Indication: PLASMA CELL MYELOMA
     Dosage: UNK, REGIMEN #1, (FIFTH LINE TREATMENT)
     Dates: start: 20121002, end: 20121022
  15. CISPLATIN. [Suspect]
     Active Substance: CISPLATIN
     Indication: PLASMA CELL MYELOMA
     Dosage: UNK, REGIMEN #1, (FIFTH LINE TREATMENT, CYCLE 1)
     Dates: start: 20130313, end: 20130412
  16. ACYCLOVIR. [Concomitant]
     Active Substance: ACYCLOVIR
     Dosage: UNK
     Dates: start: 20120715
  17. LENALIDOMIDE [Suspect]
     Active Substance: LENALIDOMIDE
     Dosage: UNK, REGIMEN #2, (FIFTH LINE TREATMENT)
     Dates: start: 20121101, end: 20121121
  18. LENALIDOMIDE [Suspect]
     Active Substance: LENALIDOMIDE
     Dosage: UNK, REGIMEN #4, (FIFTH LINE TREATMENT)
     Dates: start: 20121224, end: 20130115
  19. APO-PREDNISONE [Suspect]
     Active Substance: PREDNISONE
     Indication: PLASMA CELL MYELOMA
     Dosage: UNK, REGIMEN #1, (FOURTH LINE TREATMENT, CYCLE 1)
     Dates: start: 20110906, end: 20111129
  20. APO-PREDNISONE [Suspect]
     Active Substance: PREDNISONE
     Dosage: UNK, REGIMEN #2, (FOURTH LINE TREATMENT, CYCLE 1)
     Dates: start: 20120111, end: 20120906
  21. APO-PREDNISONE [Suspect]
     Active Substance: PREDNISONE
     Dosage: UNK, REGIMEN #3, (FOURTH LINE TREATMENT, CYCLE 1)
     Dates: start: 20130221, end: 20130222
  22. BACTRIM [Concomitant]
     Active Substance: SULFAMETHOXAZOLE\TRIMETHOPRIM
     Dosage: UNK
     Dates: start: 20110906

REACTIONS (4)
  - Fatigue [Recovered/Resolved]
  - Encephalopathy [Fatal]
  - Aplasia [Recovered/Resolved]
  - Toxicity to various agents [Recovered/Resolved]

NARRATIVE: CASE EVENT DATE: 20130327
